FAERS Safety Report 18000800 (Version 2)
Quarter: 2021Q2

REPORT INFORMATION
  Report Type: Spontaneous
  Country: CA (occurrence: CA)
  Receive Date: 20200709
  Receipt Date: 20210628
  Transmission Date: 20210717
  Serious: Yes (Hospitalization, Other)
  Sender: FDA-Public Use
  Company Number: CA-TEVA-2020-CA-1798025

PATIENT
  Age: 61 Year
  Sex: Male

DRUGS (8)
  1. FLUDARABINE PHOSPHATE FOR INJECTION SINGLE?DOSE VIAL [Suspect]
     Active Substance: FLUDARABINE PHOSPHATE
     Dosage: POWDER FOR SOLUTION INTRAVENOUS, 50 MG
     Route: 042
  2. CYTARABINE INJECTION [Suspect]
     Active Substance: CYTARABINE
     Dosage: SOLUTION INTRATHECAL
     Route: 042
  3. AMIODARONE [Concomitant]
     Active Substance: AMIODARONE
  4. PERINDOPRIL [Concomitant]
     Active Substance: PERINDOPRIL
  5. SULFAMETH/TMP DS TAB [Concomitant]
     Active Substance: SULFAMETHOXAZOLE\TRIMETHOPRIM
  6. ACYCLOVIR. [Concomitant]
     Active Substance: ACYCLOVIR
  7. CHOLECALCIFEROL [Concomitant]
     Active Substance: CHOLECALCIFEROL
  8. LEVOFLOXACIN. [Concomitant]
     Active Substance: LEVOFLOXACIN

REACTIONS (1)
  - Lower respiratory tract infection fungal [Recovered/Resolved with Sequelae]
